FAERS Safety Report 10900921 (Version 1)
Quarter: 2015Q1

REPORT INFORMATION
  Report Type: Spontaneous
  Country: BE (occurrence: BE)
  Receive Date: 20150310
  Receipt Date: 20150310
  Transmission Date: 20150721
  Serious: Yes (Hospitalization, Other)
  Sender: FDA-Public Use
  Company Number: BE-AMGEN-BELSP2015021373

PATIENT
  Age: 63 Year
  Sex: Female

DRUGS (2)
  1. NICOTIBINE [Suspect]
     Active Substance: ISONIAZID
     Indication: TUBERCULOSIS
     Dosage: UNK
     Route: 065
     Dates: start: 201501
  2. ENBREL [Suspect]
     Active Substance: ETANERCEPT
     Indication: RHEUMATOID ARTHRITIS
     Dosage: UNK
     Route: 058
     Dates: start: 201501

REACTIONS (3)
  - Autoimmune hepatitis [Unknown]
  - Antibody test positive [Unknown]
  - Hepatitis [Unknown]

NARRATIVE: CASE EVENT DATE: 2015
